FAERS Safety Report 5413738-4 (Version None)
Quarter: 2007Q3

REPORT INFORMATION
  Report Type: 
  Country: None (occurrence: None)
  Receive Date: 20070814
  Receipt Date: 20070803
  Transmission Date: 20080115
  Serious: No
  Sender: FDA-Public Use
  Company Number: US-BAXTER-2007BH006194

PATIENT
  Age: 44 Year
  Sex: Male
  Weight: 88 kg

DRUGS (6)
  1. ARALAST [Suspect]
     Indication: ALPHA-1 ANTI-TRYPSIN DEFICIENCY
     Dosage: DOSE UNIT:UNKNOWN
     Route: 042
     Dates: start: 20070207, end: 20070214
  2. ARALAST [Suspect]
     Dosage: DOSE UNIT:UNKNOWN
     Route: 042
     Dates: start: 20070222
  3. ALBUTEROL [Concomitant]
     Indication: RESPIRATORY DISORDER
     Dosage: DOSE UNIT:UNKNOWN
     Route: 055
     Dates: start: 20061227
  4. ELAVIL [Concomitant]
     Indication: AGITATION
     Route: 048
     Dates: start: 20061227
  5. PREVACID [Concomitant]
     Indication: GASTROINTESTINAL DISORDER
     Route: 048
     Dates: start: 20061227
  6. BUSPAR [Concomitant]
     Indication: SEDATION
     Route: 048
     Dates: start: 20070517

REACTIONS (1)
  - VOMITING [None]
